FAERS Safety Report 5405573-8 (Version None)
Quarter: 2007Q3

REPORT INFORMATION
  Report Type: 
  Country: None (occurrence: None)
  Receive Date: 20070803
  Receipt Date: 20070719
  Transmission Date: 20080115
  Serious: Yes (Life-Threatening, Hospitalization)
  Sender: FDA-Public Use
  Company Number: FR-PFIZER INC-2007062779

PATIENT
  Sex: Male

DRUGS (14)
  1. VIRACEPT [Suspect]
     Indication: HIV INFECTION
     Route: 048
     Dates: start: 19980415, end: 20061209
  2. VIDEX [Suspect]
     Route: 048
     Dates: start: 19960515, end: 20061219
  3. ZERIT [Suspect]
     Route: 048
     Dates: start: 19961015, end: 20061209
  4. ABACAVIR SULFATE/LAMIVUDINE [Suspect]
     Dosage: TEXT:4 DOSE FORM/
     Route: 048
     Dates: start: 20070415, end: 20070613
  5. KALETRA [Suspect]
     Dosage: TEXT:1 DOSE FORM
     Route: 048
     Dates: start: 20070415, end: 20070613
  6. BACTRIM [Concomitant]
     Dates: start: 19890615, end: 20070613
  7. ZIDOVUDINE [Concomitant]
     Dates: start: 19930615, end: 19980415
  8. VIRAMUNE [Concomitant]
     Dates: start: 19980415, end: 20061215
  9. LIPANTHYL [Concomitant]
     Dates: end: 20070613
  10. CLONAZEPAM [Concomitant]
  11. LAROXYL [Concomitant]
  12. LAXATIVES [Concomitant]
     Dates: start: 20070606
  13. MULTIVITAMIN [Concomitant]
     Dates: start: 20070615
  14. DRUG, UNSPECIFIED [Concomitant]
     Dates: start: 20070613

REACTIONS (5)
  - DIABETES MELLITUS [None]
  - LACTIC ACIDOSIS [None]
  - NAUSEA [None]
  - PANCREATITIS ACUTE [None]
  - VOMITING [None]
